FAERS Safety Report 20113009 (Version 1)
Quarter: 2021Q4

REPORT INFORMATION
  Report Type: Spontaneous
  Country: US (occurrence: US)
  Receive Date: 20211125
  Receipt Date: 20211125
  Transmission Date: 20220303
  Serious: Yes (Death, Other)
  Sender: FDA-Public Use
  Company Number: US-BRISTOL-MYERS SQUIBB COMPANY-BMS-2021-126272

PATIENT
  Age: 73 Year
  Sex: Female

DRUGS (2)
  1. OPDIVO [Suspect]
     Active Substance: NIVOLUMAB
     Indication: Adrenal gland cancer
     Dosage: 480 MILLIGRAM, Q4WK
     Route: 065
  2. YERVOY [Suspect]
     Active Substance: IPILIMUMAB
     Indication: Adrenal gland cancer
     Dosage: UNK
     Route: 065
     Dates: end: 201909

REACTIONS (2)
  - Death [Fatal]
  - Intentional product use issue [Unknown]
